FAERS Safety Report 5450005-7 (Version None)
Quarter: 2007Q3

REPORT INFORMATION
  Report Type: 
  Country: None (occurrence: None)
  Receive Date: 20070912
  Receipt Date: 20070910
  Transmission Date: 20080115
  Serious: No
  Sender: FDA-Public Use
  Company Number: US-BAXTER-2007BH007528

PATIENT
  Age: 66 Year
  Sex: Female

DRUGS (1)
  1. DIANEAL [Suspect]
     Indication: RENAL FAILURE CHRONIC
     Dosage: DOSE UNIT:UNKNOWN
     Route: 033

REACTIONS (4)
  - DIARRHOEA [None]
  - FUNGAL PERITONITIS [None]
  - NAUSEA [None]
  - PERITONITIS BACTERIAL [None]
